FAERS Safety Report 7339056-5 (Version None)
Quarter: 2011Q1

REPORT INFORMATION
  Report Type: 
  Country: None (occurrence: None)
  Receive Date: 20110308
  Receipt Date: 20110223
  Transmission Date: 20110831
  Serious: Yes (Hospitalization)
  Sender: FDA-Public Use
  Company Number: FR-ELI_LILLY_AND_COMPANY-FR201102007464

PATIENT
  Sex: Female

DRUGS (9)
  1. CYMBALTA [Suspect]
     Dosage: 30 MG, DAILY (1/D)
     Route: 048
     Dates: start: 20100428, end: 20100503
  2. ABILIFY [Concomitant]
     Route: 048
     Dates: end: 20100503
  3. TENSTATEN [Concomitant]
     Dosage: 50 MG, DAILY (1/D)
     Route: 048
     Dates: end: 20100503
  4. APROVEL [Concomitant]
     Dosage: 75 MG, DAILY (1/D)
     Route: 048
  5. DAFALGAN CODEINE [Concomitant]
     Dosage: 500 MG, DAILY (1/D)
     Route: 048
  6. STILNOX [Concomitant]
     Route: 048
     Dates: end: 20100503
  7. EQUANIL [Concomitant]
     Dosage: 250 MG, DAILY (1/D)
     Route: 048
     Dates: end: 20100503
  8. CODEINE [Concomitant]
     Dosage: UNK, DAILY (1/D)
  9. CARTROL [Concomitant]

REACTIONS (5)
  - FALL [None]
  - HYPONATRAEMIA [None]
  - FACIAL BONES FRACTURE [None]
  - INAPPROPRIATE ANTIDIURETIC HORMONE SECRETION [None]
  - HYPOKALAEMIA [None]
